FAERS Safety Report 25063167 (Version 3)
Quarter: 2025Q2

REPORT INFORMATION
  Report Type: Spontaneous
  Country: DE (occurrence: DE)
  Receive Date: 20250311
  Receipt Date: 20250418
  Transmission Date: 20250716
  Serious: Yes (Disabling)
  Sender: SANDOZ
  Company Number: DE-BAYER-2024A171739

PATIENT
  Age: 75 Year
  Sex: Male

DRUGS (18)
  1. AFLIBERCEPT [Suspect]
     Active Substance: AFLIBERCEPT
     Indication: Neovascular age-related macular degeneration
     Dosage: 70 ?L, ONCE LEFT EYE (STUDY EYE)
     Route: 031
     Dates: start: 20240507, end: 20240507
  2. AFLIBERCEPT [Suspect]
     Active Substance: AFLIBERCEPT
     Indication: Diabetic retinal oedema
     Dosage: 70 ?L, ONCE LEFT EYE
     Route: 031
     Dates: start: 20240604, end: 20240604
  3. AFLIBERCEPT [Suspect]
     Active Substance: AFLIBERCEPT
     Dosage: 70 ?L, ONCE, LEFT EYE
     Route: 031
     Dates: start: 20250211, end: 20250211
  4. AFLIBERCEPT [Suspect]
     Active Substance: AFLIBERCEPT
     Route: 031
     Dates: start: 20250113, end: 20250113
  5. CANDESARTAN [Concomitant]
     Active Substance: CANDESARTAN
     Indication: Product used for unknown indication
     Route: 065
  6. Debora [Concomitant]
     Indication: Product used for unknown indication
     Dosage: UNK IE, QOD, 2 DAYS
     Route: 065
  7. EFEROX [Concomitant]
     Active Substance: LEVOTHYROXINE SODIUM
     Indication: Product used for unknown indication
     Route: 065
  8. EYLEA [Concomitant]
     Active Substance: AFLIBERCEPT
     Dosage: 8 MG, ONCE RIGHT EYE
     Route: 065
     Dates: start: 20241126, end: 20241126
  9. EYLEA [Concomitant]
     Active Substance: AFLIBERCEPT
     Dosage: 8 MG, RIGHT EYE
     Route: 065
     Dates: start: 20250218, end: 20250218
  10. EYLEA [Concomitant]
     Active Substance: AFLIBERCEPT
     Dosage: 8 MG, RIGHT EYE, PATIENT TREATED ON BOTH EYES
     Route: 065
     Dates: start: 20250107, end: 20250107
  11. EYLEA [Concomitant]
     Active Substance: AFLIBERCEPT
     Indication: Product used for unknown indication
     Dosage: UNK, ONCE RIGHT EYE
     Route: 065
     Dates: start: 20241015, end: 20241015
  12. EZETIMIBE [Concomitant]
     Active Substance: EZETIMIBE
     Indication: Product used for unknown indication
     Route: 065
  13. Hydrochlorothiazid Dexcel [Concomitant]
     Indication: Product used for unknown indication
     Route: 065
  14. IBUPROFEN [Concomitant]
     Active Substance: IBUPROFEN
     Indication: Product used for unknown indication
     Route: 065
  15. METOPROLOL [Concomitant]
     Active Substance: METOPROLOL
     Indication: Product used for unknown indication
     Route: 065
  16. NITROLINGUAL [Concomitant]
     Active Substance: NITROGLYCERIN
     Indication: Product used for unknown indication
     Route: 065
  17. SERTRALINE HYDROCHLORIDE [Concomitant]
     Active Substance: SERTRALINE HYDROCHLORIDE
     Indication: Product used for unknown indication
     Route: 065
  18. SIMVASTATIN [Concomitant]
     Active Substance: SIMVASTATIN
     Indication: Product used for unknown indication
     Route: 065

REACTIONS (1)
  - Ocular ischaemic syndrome [Recovered/Resolved with Sequelae]

NARRATIVE: CASE EVENT DATE: 20240709
